FAERS Safety Report 20041969 (Version 1)
Quarter: 2021Q4

REPORT INFORMATION
  Report Type: Spontaneous
  Country: IN (occurrence: IN)
  Receive Date: 20211108
  Receipt Date: 20211108
  Transmission Date: 20220303
  Serious: Yes (Other)
  Sender: FDA-Public Use
  Company Number: IN-SUN PHARMACEUTICAL INDUSTRIES LTD-2021R1-316334

PATIENT
  Age: 20 Year
  Sex: Male

DRUGS (2)
  1. DEXAMETHASONE [Suspect]
     Active Substance: DEXAMETHASONE
     Indication: Muscle building therapy
     Dosage: 0.5 MILLIGRAM, BID
     Route: 065
  2. CYPROHEPTADINE HYDROCHLORIDE [Suspect]
     Active Substance: CYPROHEPTADINE HYDROCHLORIDE
     Indication: Muscle building therapy
     Dosage: UNK (8 MG IN TWO DIVIDED DOSES)
     Route: 065

REACTIONS (2)
  - Obsessive-compulsive disorder [Recovered/Resolved]
  - Suicide attempt [Unknown]
